FAERS Safety Report 6614329-X (Version None)
Quarter: 2010Q1

REPORT INFORMATION
  Report Type: 
  Country: None (occurrence: None)
  Receive Date: 20100303
  Receipt Date: 20100303
  Transmission Date: 20100710
  Serious: No
  Sender: FDA-Public Use
  Company Number: None

PATIENT
  Sex: Female
  Weight: 76 kg

DRUGS (3)
  1. CARBOPLATIN [Suspect]
     Dosage: 768 MG
     Dates: end: 20100211
  2. ERBITUX [Suspect]
     Dosage: 960 MG
     Dates: end: 20100218
  3. TAXOL [Suspect]
     Dosage: 380 MG
     Dates: end: 20100211

REACTIONS (1)
  - NEUTROPENIA [None]
